FAERS Safety Report 5033723-4 (Version None)
Quarter: 2006Q2

REPORT INFORMATION
  Report Type: 
  Country: None (occurrence: None)
  Receive Date: 20060620
  Receipt Date: 20060606
  Transmission Date: 20061013
  Serious: Yes (Hospitalization)
  Sender: FDA-Public Use
  Company Number: T06-SWI-02396-01

PATIENT
  Age: 70 Year
  Sex: Female

DRUGS (6)
  1. ESCITALOPRAM OXALATE [Suspect]
     Dosage: 10 MG QD PO
     Route: 048
     Dates: start: 20060326, end: 20060328
  2. ESCITALOPRAM OXALATE [Suspect]
     Dosage: 5 MG QD PO
     Route: 048
     Dates: start: 20060320, end: 20060325
  3. ARICEPT [Concomitant]
  4. MARCUMAR [Concomitant]
  5. INSULIN [Concomitant]
  6. ALDACTONE [Concomitant]

REACTIONS (1)
  - PARKINSONISM [None]
